FAERS Safety Report 24884214 (Version 1)
Quarter: 2025Q1

REPORT INFORMATION
  Report Type: Spontaneous
  Country: US (occurrence: US)
  Receive Date: 20250124
  Receipt Date: 20250124
  Transmission Date: 20250409
  Serious: Yes (Other)
  Sender: AMGEN
  Company Number: US-AMGEN-USASP2025010776

PATIENT
  Age: 79 Year
  Sex: Female

DRUGS (2)
  1. REPATHA [Suspect]
     Active Substance: EVOLOCUMAB
     Indication: Product used for unknown indication
     Route: 065
  2. REPATHA [Suspect]
     Active Substance: EVOLOCUMAB
     Dosage: 140 MILLIGRAM, Q2WK
     Route: 058
     Dates: start: 202412

REACTIONS (7)
  - Cerebrovascular accident [Unknown]
  - Muscular weakness [Unknown]
  - Gait disturbance [Unknown]
  - Musculoskeletal disorder [Unknown]
  - Device difficult to use [Unknown]
  - Wrong technique in product usage process [Unknown]
  - Drug dose omission by device [Unknown]

NARRATIVE: CASE EVENT DATE: 20250116
